FAERS Safety Report 6692557-5 (Version None)
Quarter: 2010Q2

REPORT INFORMATION
  Report Type: 
  Country: None (occurrence: None)
  Receive Date: 20100416
  Receipt Date: 20100401
  Transmission Date: 20101027
  Serious: Yes (Other)
  Sender: FDA-Public Use
  Company Number: 2010001181

PATIENT
  Age: 66 Year
  Sex: Male

DRUGS (10)
  1. TARCEVA [Suspect]
     Indication: LUNG CANCER METASTATIC
     Dosage: 150 MG, QD, ORAL
     Route: 048
     Dates: start: 20100203
  2. ZOLPIDEM TARTRATE [Concomitant]
  3. RAMIPRIL [Concomitant]
  4. NEBIVOLOL HCL [Concomitant]
  5. TOREM (TORASEMIDE) [Concomitant]
  6. ALLOPURINOL [Concomitant]
  7. CALCIUM CARBONATE [Concomitant]
  8. SPIRONOLACTONE [Concomitant]
  9. INSULIN LISPRO (INSULIN LISPRO) [Concomitant]
  10. HUMINSULIN NORMAL (INSULIN HUMAN) [Concomitant]

REACTIONS (2)
  - MUCOSAL INFLAMMATION [None]
  - MUCOSAL ULCERATION [None]
